FAERS Safety Report 5033571-5 (Version None)
Quarter: 2006Q2

REPORT INFORMATION
  Report Type: 
  Country: None (occurrence: None)
  Receive Date: 20060623
  Receipt Date: 20060612
  Transmission Date: 20061013
  Serious: Yes (Other)
  Sender: FDA-Public Use
  Company Number: MX-ROCHE-451524

PATIENT
  Age: 49 Year
  Sex: Male

DRUGS (3)
  1. ROACCUTAN [Suspect]
     Indication: ACNE
     Route: 048
     Dates: start: 20050421
  2. CLINDAMYCIN [Concomitant]
     Indication: ACNE
     Dosage: ROUTE REPORTED AS TP.
     Route: 061
  3. METRONIDAZOLE [Concomitant]
     Indication: ACNE
     Dosage: ROUTE REPORTED AS TP.
     Route: 061

REACTIONS (1)
  - LYMPHOMA [None]
